FAERS Safety Report 6157158-6 (Version None)
Quarter: 2009Q2

REPORT INFORMATION
  Report Type: 
  Country: None (occurrence: None)
  Receive Date: 20090413
  Receipt Date: 20090401
  Transmission Date: 20091009
  Serious: Yes (Hospitalization)
  Sender: FDA-Public Use
  Company Number: IT-000123

PATIENT
  Age: 44 Year
  Sex: Male

DRUGS (1)
  1. MENOGON /01277604/ (MENOTROPHIN) POWDER FOR SOLUTION FOR INJECTION 75 [Suspect]
     Indication: INFERTILITY MALE
     Dosage: 75 IU 1X/WEEK INTRAMUSCULAR
     Route: 030
     Dates: start: 20090101, end: 20090320

REACTIONS (2)
  - HEPATITIS B [None]
  - TRANSMISSION OF AN INFECTIOUS AGENT VIA A MEDICINAL PRODUCT [None]
